FAERS Safety Report 8239824-1 (Version None)
Quarter: 2012Q1

REPORT INFORMATION
  Report Type: 
  Country: None (occurrence: None)
  Receive Date: 20120328
  Receipt Date: 20120316
  Transmission Date: 20120608
  Serious: Yes (Other)
  Sender: FDA-Public Use
  Company Number: PHHY2012BR023379

PATIENT
  Sex: Male

DRUGS (3)
  1. CLONAZEPAM [Concomitant]
     Route: 060
  2. RITALIN [Suspect]
     Indication: ATTENTION DEFICIT/HYPERACTIVITY DISORDER
     Dosage: 3 DF, DAILY FOR 2 MONTHS
  3. VENLAFAXINE HCL [Concomitant]

REACTIONS (5)
  - DYSPNOEA [None]
  - TACHYCARDIA [None]
  - PALPITATIONS [None]
  - DISTURBANCE IN ATTENTION [None]
  - ANXIETY [None]
